FAERS Safety Report 9935258 (Version 2)
Quarter: 2014Q2

REPORT INFORMATION
  Report Type: Report from Study
  Country: AU (occurrence: AU)
  Receive Date: 20140228
  Receipt Date: 20140428
  Transmission Date: 20141212
  Serious: No
  Sender: FDA-Public Use
  Company Number: PHHY2014AU024412

PATIENT
  Sex: Female

DRUGS (4)
  1. ACLASTA [Suspect]
     Dosage: 5 MG,
     Route: 042
     Dates: start: 20100113
  2. ACLASTA [Suspect]
     Dosage: 5 MG,
     Route: 042
     Dates: start: 20110209
  3. ACLASTA [Suspect]
     Dosage: 5 MG,
     Route: 042
     Dates: start: 20120305
  4. ACLASTA [Suspect]
     Dosage: 5 MG,
     Route: 042
     Dates: start: 20130315

REACTIONS (2)
  - Viral infection [Recovered/Resolved]
  - Cough [Recovered/Resolved]
